FAERS Safety Report 19604929 (Version 2)
Quarter: 2021Q4

REPORT INFORMATION
  Report Type: Report from Study
  Country: US (occurrence: US)
  Receive Date: 20210723
  Receipt Date: 20211015
  Transmission Date: 20220303
  Serious: Yes (Hospitalization)
  Sender: FDA-Public Use
  Company Number: US-BOEHRINGERINGELHEIM-2021-BI-116805

PATIENT
  Age: 85 Year
  Sex: Female

DRUGS (1)
  1. GILOTRIF [Suspect]
     Active Substance: AFATINIB
     Indication: Lung neoplasm malignant
     Dosage: 30 MG ONCE DAILY
     Dates: start: 2021, end: 20210718

REACTIONS (5)
  - Asthenia [Unknown]
  - Fall [Recovered/Resolved]
  - Diarrhoea [Unknown]
  - Food refusal [Unknown]
  - Dehydration [Unknown]

NARRATIVE: CASE EVENT DATE: 20210701
